FAERS Safety Report 7686468-6 (Version None)
Quarter: 2011Q3

REPORT INFORMATION
  Report Type: 
  Country: None (occurrence: None)
  Receive Date: 20110816
  Receipt Date: 20110802
  Transmission Date: 20111222
  Serious: Yes (Other)
  Sender: FDA-Public Use
  Company Number: GB-ALEXION PHARMACEUTICALS INC.-A201101161

PATIENT
  Sex: Female
  Weight: 11.2 kg

DRUGS (5)
  1. SOLIRIS [Suspect]
     Indication: HAEMOLYTIC URAEMIC SYNDROME
     Dosage: 600 MG, SINGLE
     Route: 042
     Dates: start: 20110722
  2. SOLIRIS [Suspect]
     Dosage: 300 MG, UNK
     Route: 042
  3. MILRINONE [Concomitant]
  4. CHLORPHENIRAMINE MALEATE [Concomitant]
  5. HYDROCORTISONE [Concomitant]

REACTIONS (4)
  - LIP SWELLING [None]
  - SWELLING FACE [None]
  - RESPIRATORY RATE INCREASED [None]
  - INFUSION RELATED REACTION [None]
